FAERS Safety Report 12119525 (Version 1)
Quarter: 2016Q1

REPORT INFORMATION
  Report Type: Spontaneous
  Country: JP (occurrence: JP)
  Receive Date: 20160226
  Receipt Date: 20160226
  Transmission Date: 20160526
  Serious: Yes (Other)
  Sender: FDA-Public Use
  Company Number: JP-TAKEDA-2016MPI001214

PATIENT

DRUGS (4)
  1. VELCADE [Suspect]
     Active Substance: BORTEZOMIB
     Dosage: 1.3 MG/M2, UNK
     Route: 042
  2. VORINOSTAT [Concomitant]
     Active Substance: VORINOSTAT
     Indication: PLASMA CELL MYELOMA
     Dosage: 300 MG, UNK
     Route: 048
  3. VORINOSTAT [Concomitant]
     Active Substance: VORINOSTAT
     Dosage: 400 MG, UNK
     Route: 048
  4. VELCADE [Suspect]
     Active Substance: BORTEZOMIB
     Indication: PLASMA CELL MYELOMA
     Dosage: 1 MG/M2, UNK
     Route: 042

REACTIONS (19)
  - Neutropenia [Unknown]
  - Hypokalaemia [Unknown]
  - Vomiting [Unknown]
  - Dehydration [Unknown]
  - Decreased appetite [Unknown]
  - Weight decreased [Unknown]
  - Sepsis [Unknown]
  - Disseminated intravascular coagulation [Unknown]
  - Pyelonephritis [Unknown]
  - Diarrhoea [Unknown]
  - Nausea [Unknown]
  - Hypoaesthesia [Unknown]
  - Thrombocytopenia [Unknown]
  - Pneumonia [Unknown]
  - Leukopenia [Unknown]
  - Anaemia [Unknown]
  - Lymphopenia [Unknown]
  - Constipation [Unknown]
  - Fatigue [Unknown]
